FAERS Safety Report 14144803 (Version 2)
Quarter: 2017Q4

REPORT INFORMATION
  Report Type: Report from Study
  Country: IL (occurrence: IL)
  Receive Date: 20171031
  Receipt Date: 20171208
  Transmission Date: 20180321
  Serious: Yes (Other)
  Sender: FDA-Public Use
  Company Number: IL-TEVA-817966ACC

PATIENT
  Age: 56 Year
  Sex: Female

DRUGS (9)
  1. CARDILOC [Concomitant]
     Active Substance: BISOPROLOL FUMARATE
  2. LITORVA [Concomitant]
     Active Substance: ATORVASTATIN CALCIUM
  3. RAMITENS [Concomitant]
  4. BEZAFIBRAT [Concomitant]
     Active Substance: BEZAFIBRATE
  5. GLUCOPHAGE [Concomitant]
     Active Substance: METFORMIN HYDROCHLORIDE
  6. GLUCO-RITE [Concomitant]
     Active Substance: GLIPIZIDE
  7. COPAXONE [Suspect]
     Active Substance: GLATIRAMER ACETATE
     Indication: RELAPSING-REMITTING MULTIPLE SCLEROSIS
     Route: 058
     Dates: start: 20150303
  8. CLOPIDEXCEL [Concomitant]
  9. DUOTRAV [Concomitant]
     Active Substance: TIMOLOL MALEATE\TRAVOPROST
     Dates: start: 201606

REACTIONS (2)
  - Diabetes mellitus [Recovering/Resolving]
  - Blood glucose increased [Recovering/Resolving]

NARRATIVE: CASE EVENT DATE: 20171001
